FAERS Safety Report 20525062 (Version 4)
Quarter: 2024Q4

REPORT INFORMATION
  Report Type: Report from Study
  Country: US (occurrence: US)
  Receive Date: 20220228
  Receipt Date: 20241017
  Transmission Date: 20250114
  Serious: Yes (Other)
  Sender: NOVARTIS
  Company Number: US-NOVARTISTESTPH-NVSC2022US045967

PATIENT
  Age: 76 Year
  Sex: Female

DRUGS (3)
  1. PIQRAY [Suspect]
     Active Substance: ALPELISIB
     Indication: Breast cancer
     Dosage: 300 MG, QD
     Route: 048
  2. PIQRAY [Suspect]
     Active Substance: ALPELISIB
     Dosage: 300 MG, Q2H
     Route: 048
  3. PIQRAY [Suspect]
     Active Substance: ALPELISIB
     Dosage: 300 MG
     Route: 048
     Dates: start: 20220210, end: 20220301

REACTIONS (10)
  - Pleural effusion [Recovering/Resolving]
  - Rib fracture [Recovering/Resolving]
  - Kidney infection [Unknown]
  - Cystitis [Recovered/Resolved]
  - Wound [Recovering/Resolving]
  - Dehydration [Recovered/Resolved]
  - Diarrhoea [Recovered/Resolved]
  - Nausea [Recovered/Resolved]
  - Dry mouth [Recovered/Resolved]
  - Hypoglycaemia [Unknown]

NARRATIVE: CASE EVENT DATE: 20220210
